FAERS Safety Report 9163785 (Version 1)
Quarter: 2013Q1

REPORT INFORMATION
  Report Type: Spontaneous
  Country: US (occurrence: US)
  Receive Date: 20130314
  Receipt Date: 20130314
  Transmission Date: 20140127
  Serious: Yes (Other)
  Sender: FDA-Public Use
  Company Number: US-PFIZER INC-2013082408

PATIENT
  Age: 35 Year
  Sex: Male

DRUGS (8)
  1. ZIDOVUDINE [Suspect]
     Indication: HIV INFECTION
     Dosage: 600 MG/D
  2. NELFINAVIR MESILATE [Suspect]
     Indication: HIV INFECTION
     Dosage: 2.5 G/D
  3. DIDANOSINE [Interacting]
     Indication: HIV INFECTION
     Dosage: 400 MG/D
  4. EFAVIRENZ [Suspect]
     Indication: HIV INFECTION
     Dosage: 600 MG/D
  5. ABACAVIR [Suspect]
     Indication: HIV INFECTION
     Dosage: 600 MG/D
  6. COMBIVIR [Suspect]
     Indication: HIV INFECTION
     Dosage: 150/300 MG/DAY
     Dates: start: 2002
  7. FOSAMPRENAVIR [Suspect]
     Indication: HIV INFECTION
     Dosage: 1.4 G/D
  8. KALETRA [Suspect]
     Indication: HIV INFECTION
     Dosage: 800/200 MG/D
     Route: 065

REACTIONS (2)
  - Drug interaction [Unknown]
  - Retinal toxicity [Unknown]
